FAERS Safety Report 7959677-6 (Version None)
Quarter: 2011Q4

REPORT INFORMATION
  Report Type: 
  Country: None (occurrence: None)
  Receive Date: 20111206
  Receipt Date: 20111128
  Transmission Date: 20120403
  Serious: Yes (Hospitalization)
  Sender: FDA-Public Use
  Company Number: US-GLAXOSMITHKLINE-A0897811A

PATIENT
  Age: 71 Year
  Sex: Female
  Weight: 79.5 kg

DRUGS (1)
  1. AVANDIA [Suspect]
     Indication: DIABETES MELLITUS
     Dosage: 4MG TWICE PER DAY
     Route: 048
     Dates: start: 20021001, end: 20070301

REACTIONS (8)
  - CARDIAC FAILURE CONGESTIVE [None]
  - CARDIAC ARREST [None]
  - CORONARY ARTERY DISEASE [None]
  - ECONOMIC PROBLEM [None]
  - CEREBROVASCULAR ACCIDENT [None]
  - HEART INJURY [None]
  - PAIN [None]
  - CARDIOMYOPATHY [None]
